FAERS Safety Report 5463050-2 (Version None)
Quarter: 2007Q3

REPORT INFORMATION
  Report Type: 
  Country: None (occurrence: None)
  Receive Date: 20070918
  Receipt Date: 20070918
  Transmission Date: 20080115
  Serious: Yes (Other)
  Sender: FDA-Public Use
  Company Number: None

PATIENT
  Age: 43 Year
  Sex: Female
  Weight: 49.8957 kg

DRUGS (1)
  1. AVELOX [Suspect]
     Indication: SINUSITIS
     Dates: start: 20070914, end: 20070914

REACTIONS (8)
  - AMNESIA [None]
  - BACK PAIN [None]
  - CHILLS [None]
  - DRY MOUTH [None]
  - FEELING COLD [None]
  - POLYDIPSIA [None]
  - POLYURIA [None]
  - PYREXIA [None]
